FAERS Safety Report 22127082 (Version 2)
Quarter: 2023Q2

REPORT INFORMATION
  Report Type: Spontaneous
  Country: US (occurrence: US)
  Receive Date: 20230322
  Receipt Date: 20230405
  Transmission Date: 20230722
  Serious: No
  Sender: FDA-Public Use
  Company Number: US-ALKERMES INC.-ALK-2023-001190

PATIENT
  Sex: Female

DRUGS (1)
  1. VIVITROL [Suspect]
     Active Substance: NALTREXONE
     Indication: Alcoholism
     Dosage: 380 MILLIGRAM, QMO
     Route: 030

REACTIONS (3)
  - Wrong technique in product usage process [Recovered/Resolved]
  - Injection site reaction [Unknown]
  - Injection site induration [Unknown]

NARRATIVE: CASE EVENT DATE: 20230206
